FAERS Safety Report 19135072 (Version 2)
Quarter: 2021Q3

REPORT INFORMATION
  Report Type: Other
  Country: IT (occurrence: IT)
  Receive Date: 20210414
  Receipt Date: 20210721
  Transmission Date: 20211014
  Serious: Yes (Death, Hospitalization)
  Sender: FDA-Public Use
  Company Number: IT-ROCHE-2796250

PATIENT
  Age: 69 Year
  Sex: Female

DRUGS (2)
  1. RITUXIMAB. [Suspect]
     Active Substance: RITUXIMAB
     Indication: THROMBOTIC THROMBOCYTOPENIC PURPURA
     Route: 065
  2. PREDNISONE. [Suspect]
     Active Substance: PREDNISONE
     Indication: THROMBOTIC THROMBOCYTOPENIC PURPURA
     Route: 065

REACTIONS (17)
  - Off label use [Fatal]
  - Cardiogenic shock [Fatal]
  - Anaemia [Fatal]
  - Renal impairment [Fatal]
  - Endocarditis [Fatal]
  - Scleroderma renal crisis [Fatal]
  - Haemolysis [Fatal]
  - Product use in unapproved indication [Fatal]
  - Endocarditis bacterial [Fatal]
  - Drug effective for unapproved indication [Fatal]
  - Pyrexia [Fatal]
  - Sepsis [Fatal]
  - Cardiomyopathy [Fatal]
  - Staphylococcal infection [Fatal]
  - Endocarditis staphylococcal [Fatal]
  - Thrombocytopenia [Fatal]
  - Cardiac valve vegetation [Fatal]
